FAERS Safety Report 12843587 (Version 3)
Quarter: 2016Q4

REPORT INFORMATION
  Report Type: Spontaneous
  Country: FR (occurrence: FR)
  Receive Date: 20161013
  Receipt Date: 20161219
  Transmission Date: 20170207
  Serious: Yes (Hospitalization)
  Sender: FDA-Public Use
  Company Number: FR-PFIZER INC-2016470621

PATIENT
  Age: 80 Year
  Sex: Female

DRUGS (9)
  1. LYRICA [Suspect]
     Active Substance: PREGABALIN
     Dosage: 75 MG, 2X/DAY
     Route: 048
  2. ZYPREXA [Suspect]
     Active Substance: OLANZAPINE
     Dosage: 5 MG, 1X/DAY
     Route: 048
  3. AMLODIPINE [Suspect]
     Active Substance: AMLODIPINE BESYLATE
     Dosage: 5 MG, 1X/DAY
     Route: 048
  4. DEROXAT [Suspect]
     Active Substance: PAROXETINE HYDROCHLORIDE
     Dosage: 20 MG, 2X/DAY
     Route: 048
  5. MIANSERINE ARROW [Suspect]
     Active Substance: MIANSERIN HYDROCHLORIDE
     Dosage: 60 MG, 1X/DAY
     Route: 048
  6. TEMESTA [Suspect]
     Active Substance: LORAZEPAM
     Dosage: 2.5 MG, 1X/DAY
     Route: 048
  7. EXELON [Suspect]
     Active Substance: RIVASTIGMINE TARTRATE
     Dosage: 9.5 MG, ONCE IN 24 HOURS
     Route: 062
  8. SERESTA [Suspect]
     Active Substance: OXAZEPAM
     Dosage: 10 MG, 2X/DAY
     Route: 048
  9. BISOPROLOL ACCORD [Suspect]
     Active Substance: BISOPROLOL
     Dosage: 10 MG, 1X/DAY
     Route: 048

REACTIONS (5)
  - Malaise [Recovered/Resolved]
  - Somnolence [Unknown]
  - Lung disorder [Recovered/Resolved]
  - Bronchitis [Unknown]
  - Oxygen saturation abnormal [Recovered/Resolved]

NARRATIVE: CASE EVENT DATE: 20160831
